FAERS Safety Report 12869512 (Version 2)
Quarter: 2020Q3

REPORT INFORMATION
  Report Type: Report from Study
  Country: DO (occurrence: DO)
  Receive Date: 20161021
  Receipt Date: 20200715
  Transmission Date: 20201102
  Serious: Yes (Other)
  Sender: FDA-Public Use
  Company Number: PHHY2016DO144521

PATIENT
  Age: 98 Year
  Sex: Female

DRUGS (3)
  1. DIOVAN [Suspect]
     Active Substance: VALSARTAN
     Indication: PRODUCT USED FOR UNKNOWN INDICATION
     Dosage: 320 MG,
     Route: 065
  2. CO?DIOVAN [Suspect]
     Active Substance: HYDROCHLOROTHIAZIDE\VALSARTAN
     Indication: PRODUCT USED FOR UNKNOWN INDICATION
     Dosage: (HYDROCHLOROTHIAZIDE 12.5 MG, VALSARTAN 160 MG)
     Route: 065
  3. CO?DIOVAN [Suspect]
     Active Substance: HYDROCHLOROTHIAZIDE\VALSARTAN
     Dosage: (HYDROCHLOROTHIAZIDE 12.5 MG, VALSARTAN 320 MG)
     Route: 065

REACTIONS (4)
  - Pulse abnormal [Unknown]
  - Bone disorder [Unknown]
  - Dementia Alzheimer^s type [Unknown]
  - Intentional overdose [Unknown]
